FAERS Safety Report 17683895 (Version 1)
Quarter: 2020Q2

REPORT INFORMATION
  Report Type: Spontaneous
  Country: RU (occurrence: RU)
  Receive Date: 20200420
  Receipt Date: 20200420
  Transmission Date: 20200714
  Serious: Yes (Life-Threatening, Other)
  Sender: FDA-Public Use
  Company Number: RU-SA-2020SA099903

PATIENT
  Age: 50 Year
  Sex: Male

DRUGS (4)
  1. TOUJEO [Suspect]
     Active Substance: INSULIN GLARGINE
     Indication: TYPE 2 DIABETES MELLITUS
     Dosage: 26 IU, QD (IN THE VENING BEFORE MEAL)
     Route: 058
     Dates: start: 20180614, end: 20180713
  2. ALPRAZOLAM. [Concomitant]
     Active Substance: ALPRAZOLAM
     Indication: INSOMNIA
     Dosage: 2 MG, QD (EVERY NIGHT)
     Route: 048
     Dates: start: 20170101
  3. PHENAZEPAM [Concomitant]
     Active Substance: PHENAZEPAM
     Dosage: 1 DF, QD (AT NIGHT)
     Route: 048
     Dates: start: 20170101
  4. INSULIN LISPRO [Concomitant]
     Active Substance: INSULIN LISPRO
     Indication: TYPE 2 DIABETES MELLITUS
     Dosage: 6 IU, TID (BEFORE MEAL)
     Route: 058
     Dates: start: 20130101

REACTIONS (4)
  - Headache [Recovered/Resolved]
  - Hypoaesthesia [Recovered/Resolved]
  - Epilepsy [Recovered/Resolved]
  - Fatigue [Recovered/Resolved]
